FAERS Safety Report 7076796-X (Version None)
Quarter: 2010Q4

REPORT INFORMATION
  Report Type: 
  Country: None (occurrence: None)
  Receive Date: 20101022
  Receipt Date: 20101012
  Transmission Date: 20110411
  Serious: Yes (Other)
  Sender: FDA-Public Use
  Company Number: TPA2010A05343

PATIENT

DRUGS (1)
  1. ACTOPLUS MET [Suspect]
     Dates: start: 20071012

REACTIONS (1)
  - BLADDER CANCER [None]
